FAERS Safety Report 17049362 (Version 1)
Quarter: 2019Q4

REPORT INFORMATION
  Report Type: Spontaneous
  Country: US (occurrence: US)
  Receive Date: 20191119
  Receipt Date: 20191119
  Transmission Date: 20200122
  Serious: Yes (Death)
  Sender: FDA-Public Use
  Company Number: None

PATIENT
  Age: 48 Year
  Sex: Male

DRUGS (22)
  1. TOBRAMYCIN. [Concomitant]
     Active Substance: TOBRAMYCIN
  2. VITAMIN D CAP [Concomitant]
  3. ATOVAQUONE. [Concomitant]
     Active Substance: ATOVAQUONE
  4. FLUDROCORT [Concomitant]
  5. ACITRETIN. [Concomitant]
     Active Substance: ACITRETIN
  6. ALENDRONATE [Concomitant]
     Active Substance: ALENDRONATE SODIUM
  7. ESCITALOPRAM TAB [Concomitant]
  8. PRAVASTATIN. [Concomitant]
     Active Substance: PRAVASTATIN
  9. FUROSEMIDE. [Concomitant]
     Active Substance: FUROSEMIDE
  10. METOCLOPRAM TAB [Concomitant]
  11. AZITHROMYCIN ANHYDROUS. [Concomitant]
     Active Substance: AZITHROMYCIN ANHYDROUS
  12. PANTOPRAZOLE TAB [Concomitant]
  13. FOLIC ACID. [Concomitant]
     Active Substance: FOLIC ACID
  14. MONTELUKAST [Concomitant]
     Active Substance: MONTELUKAST SODIUM
  15. LEVEMIR [Concomitant]
     Active Substance: INSULIN DETEMIR
  16. PRAVASTATIN. [Concomitant]
     Active Substance: PRAVASTATIN
  17. FEROSUL [Concomitant]
     Active Substance: FERROUS SULFATE
  18. MAGNESIUM-OX TAB [Concomitant]
  19. FLUTICASONE. [Concomitant]
     Active Substance: FLUTICASONE
  20. INTRON A [Suspect]
     Active Substance: INTERFERON ALFA-2B
     Indication: SKIN CANCER
     Dosage: ?          OTHER FREQUENCY:3 X WEEKLY;?
     Route: 058
     Dates: start: 20190918, end: 20191118
  21. ALBUTEROL. [Concomitant]
     Active Substance: ALBUTEROL
  22. NOVOLOG [Concomitant]
     Active Substance: INSULIN ASPART

REACTIONS (1)
  - Death [None]

NARRATIVE: CASE EVENT DATE: 20191118
